FAERS Safety Report 13965192 (Version 1)
Quarter: 2017Q3

REPORT INFORMATION
  Report Type: Spontaneous
  Country: US (occurrence: US)
  Receive Date: 20170913
  Receipt Date: 20170913
  Transmission Date: 20171128
  Serious: Yes (Disabling)
  Sender: FDA-Public Use
  Company Number: US-PURDUE PHARMA-USA-2017-0140563

PATIENT
  Sex: Female

DRUGS (1)
  1. PERI-COLACE [Suspect]
     Active Substance: CASANTHRANOL\DOCUSATE SODIUM
     Indication: PRODUCT USED FOR UNKNOWN INDICATION
     Dosage: 2 TABLET (ONCE OR TWICE A WEEK), PRN
     Route: 048

REACTIONS (4)
  - Drug effect decreased [Unknown]
  - Disability [Unknown]
  - Abdominal distension [Unknown]
  - Unevaluable event [Unknown]
